FAERS Safety Report 18054877 (Version 1)
Quarter: 2020Q3

REPORT INFORMATION
  Report Type: Spontaneous
  Country: US (occurrence: US)
  Receive Date: 20200722
  Receipt Date: 20200722
  Transmission Date: 20201103
  Serious: Yes (Hospitalization)
  Sender: FDA-Public Use
  Company Number: None

PATIENT
  Age: 64 Year
  Sex: Male
  Weight: 89.55 kg

DRUGS (14)
  1. BUMEX 1 MG [Concomitant]
  2. MORPHINE SULFATE ER 15 MG [Concomitant]
  3. TRAZODONE [Concomitant]
     Active Substance: TRAZODONE HYDROCHLORIDE
  4. INLYTA [Suspect]
     Active Substance: AXITINIB
     Indication: RENAL CANCER
     Route: 048
     Dates: start: 20200523, end: 20200720
  5. DEXAMETHASONE 4 MG [Concomitant]
     Active Substance: DEXAMETHASONE
  6. ZOFRAN 8 MG [Concomitant]
  7. OXYCODONE 5 MG [Concomitant]
     Active Substance: OXYCODONE
  8. IPRATROPIUM?ALBUTEROL 0.5?2.5 MG [Concomitant]
  9. ATIVAN 1 MG [Concomitant]
  10. SENNA LAXATIVE 8.6 MG [Concomitant]
  11. LOPRESSOR 25 MG [Concomitant]
  12. ALBUTEROL SULFATE 90 HFA [Concomitant]
  13. SUTENT [Concomitant]
     Active Substance: SUNITINIB MALATE
  14. LIPITOR [Concomitant]
     Active Substance: ATORVASTATIN CALCIUM

REACTIONS (1)
  - Hospice care [None]

NARRATIVE: CASE EVENT DATE: 20200720
